FAERS Safety Report 19003237 (Version 1)
Quarter: 2021Q1

REPORT INFORMATION
  Report Type: Report from Study
  Country: US (occurrence: US)
  Receive Date: 20210312
  Receipt Date: 20210312
  Transmission Date: 20210420
  Serious: Yes (Other)
  Sender: FDA-Public Use
  Company Number: US-MYLANLABS-2021M1013088

PATIENT
  Age: 67 Year
  Sex: Male

DRUGS (3)
  1. PHENOBARBITAL. [Concomitant]
     Active Substance: PHENOBARBITAL
     Dosage: UNK
  2. MYSOLINE [Concomitant]
     Active Substance: PRIMIDONE
     Dosage: UNK
  3. PHENYTOIN. [Suspect]
     Active Substance: PHENYTOIN
     Indication: SEIZURE
     Dosage: 6 CAPSULES DAILY
     Route: 048

REACTIONS (3)
  - Hallucination, auditory [Recovered/Resolved]
  - Drug ineffective [Recovered/Resolved]
  - Feeling abnormal [Recovered/Resolved]
